FAERS Safety Report 7306202-9 (Version None)
Quarter: 2011Q1

REPORT INFORMATION
  Report Type: 
  Country: None (occurrence: None)
  Receive Date: 20110222
  Receipt Date: 20110209
  Transmission Date: 20110831
  Serious: Yes (Other)
  Sender: FDA-Public Use
  Company Number: PHHY2011GB10353

PATIENT
  Age: 63 Year
  Sex: Male
  Weight: 75 kg

DRUGS (6)
  1. VANCOMYCIN [Suspect]
     Indication: INFECTION
     Dosage: 500 MG, UNK
     Route: 013
     Dates: start: 20100726
  2. CALCICHEW [Concomitant]
     Dosage: 1.2 G, TID
     Route: 048
  3. PREGABALIN [Concomitant]
     Dosage: 50 MG, QD
  4. AMITRIPTYLINE [Concomitant]
     Indication: ANALGESIC THERAPY
     Dosage: 10 MG, UNK
  5. OXYCONTIN [Concomitant]
     Indication: ANALGESIC THERAPY
     Dosage: 10 MG, BID
  6. SILDENAFIL [Concomitant]

REACTIONS (6)
  - PAIN IN EXTREMITY [None]
  - ERYTHEMA [None]
  - OEDEMA PERIPHERAL [None]
  - CYANOSIS [None]
  - WRONG TECHNIQUE IN DRUG USAGE PROCESS [None]
  - INCORRECT ROUTE OF DRUG ADMINISTRATION [None]
